FAERS Safety Report 7400458-X (Version None)
Quarter: 2011Q2

REPORT INFORMATION
  Report Type: 
  Country: None (occurrence: None)
  Receive Date: 20110407
  Receipt Date: 20110401
  Transmission Date: 20111010
  Serious: Yes (Hospitalization)
  Sender: FDA-Public Use
  Company Number: US-PFIZER INC-2011073120

PATIENT
  Age: 60 Year
  Sex: Male

DRUGS (3)
  1. ATORVASTATIN CALCIUM [Suspect]
     Dosage: UNK
  2. GM-CSF [Suspect]
     Indication: MALIGNANT MELANOMA
  3. IPILIMUMAB [Suspect]
     Indication: MALIGNANT MELANOMA
     Dosage: 870 MG, CYCLIC
     Route: 042
     Dates: start: 20110211, end: 20110304

REACTIONS (2)
  - BACK PAIN [None]
  - MUSCULAR WEAKNESS [None]
